FAERS Safety Report 19213068 (Version 3)
Quarter: 2021Q3

REPORT INFORMATION
  Report Type: Report from Study
  Country: US (occurrence: US)
  Receive Date: 20210504
  Receipt Date: 20210720
  Transmission Date: 20211014
  Serious: No
  Sender: FDA-Public Use
  Company Number: US-JNJFOC-20210452561

PATIENT
  Age: 18 Year
  Sex: Female

DRUGS (4)
  1. SPRAVATO [Suspect]
     Active Substance: ESKETAMINE
     Dates: start: 20210422, end: 20210422
  2. SPRAVATO [Suspect]
     Active Substance: ESKETAMINE
     Dates: end: 20210617
  3. SPRAVATO [Suspect]
     Active Substance: ESKETAMINE
     Indication: DEPRESSION
     Dosage: 6 TOTAL DOSES
     Dates: start: 20210322, end: 20210412
  4. SPRAVATO [Suspect]
     Active Substance: ESKETAMINE
     Dosage: 2 TOTAL DOSES
     Dates: start: 20210414, end: 20210419

REACTIONS (2)
  - Nausea [Recovered/Resolved]
  - Vomiting [Recovered/Resolved]

NARRATIVE: CASE EVENT DATE: 20210422
